FAERS Safety Report 11174127 (Version 2)
Quarter: 2015Q2

REPORT INFORMATION
  Report Type: Spontaneous
  Country: JP (occurrence: JP)
  Receive Date: 20150609
  Receipt Date: 20150630
  Transmission Date: 20150821
  Serious: Yes (Death, Hospitalization, Other)
  Sender: FDA-Public Use
  Company Number: JP-TEVA-568385ISR

PATIENT
  Age: 71 Year
  Sex: Male

DRUGS (4)
  1. WARFARIN [Suspect]
     Active Substance: WARFARIN
     Indication: CEREBRAL INFARCTION
     Dosage: STARTED 5 MG AND CONTINUED AT 1 MG
     Route: 048
     Dates: start: 1999
  2. WARFARIN [Interacting]
     Active Substance: WARFARIN
     Route: 048
  3. WARFARIN [Interacting]
     Active Substance: WARFARIN
     Route: 048
  4. GIMERACIL, OTERACIL, TEGAFUR [Interacting]
     Active Substance: GIMERACIL\OTERACIL\TEGAFUR
     Indication: GINGIVAL CANCER
     Dosage: 120 MILLIGRAM DAILY;
     Route: 048

REACTIONS (4)
  - Prothrombin time prolonged [Recovered/Resolved]
  - Empyema [Fatal]
  - Drug interaction [Recovered/Resolved]
  - International normalised ratio increased [Recovered/Resolved]
